FAERS Safety Report 6638725-X (Version None)
Quarter: 2010Q1

REPORT INFORMATION
  Report Type: 
  Country: None (occurrence: None)
  Receive Date: 20100316
  Receipt Date: 20100316
  Transmission Date: 20100710
  Serious: Yes (Hospitalization)
  Sender: FDA-Public Use
  Company Number: None

PATIENT
  Sex: Female
  Weight: 90 kg

DRUGS (1)
  1. CEFTRIAXONE [Suspect]
     Indication: CELLULITIS ORBITAL
     Dosage: CEFTRIAXONE 2 GRM Q 12 H IV DRIP
     Route: 041
     Dates: start: 20100309, end: 20100310

REACTIONS (1)
  - TUBULOINTERSTITIAL NEPHRITIS [None]
